FAERS Safety Report 11880202 (Version 1)
Quarter: 2015Q4

REPORT INFORMATION
  Report Type: Spontaneous
  Country: NL (occurrence: NL)
  Receive Date: 20151230
  Receipt Date: 20151230
  Transmission Date: 20160305
  Serious: Yes (Other)
  Sender: FDA-Public Use
  Company Number: NL-WATSON-2015-28245

PATIENT
  Age: 70 Year
  Sex: Male

DRUGS (3)
  1. SOTALOL (UNKNOWN) [Suspect]
     Active Substance: SOTALOL
     Indication: CARDIAC FIBRILLATION
     Dosage: 40 MG, TID.(3DD40MG-} 07/15: 3DD80MG)
     Route: 048
     Dates: start: 201504
  2. SOTALOL (UNKNOWN) [Suspect]
     Active Substance: SOTALOL
     Dosage: 80 MG, TID
     Route: 048
     Dates: start: 201507
  3. PRADAXA [Concomitant]
     Active Substance: DABIGATRAN ETEXILATE MESYLATE
     Indication: PRODUCT USED FOR UNKNOWN INDICATION
     Dosage: 150 MG, BID
     Route: 048
     Dates: start: 201504

REACTIONS (4)
  - Syncope [Unknown]
  - Fatigue [Unknown]
  - Nausea [Unknown]
  - Migraine with aura [Unknown]

NARRATIVE: CASE EVENT DATE: 20151107
